FAERS Safety Report 5740948-9 (Version None)
Quarter: 2008Q2

REPORT INFORMATION
  Report Type: 
  Country: None (occurrence: None)
  Receive Date: 20080515
  Receipt Date: 20080124
  Transmission Date: 20081010
  Serious: No
  Sender: FDA-Public Use
  Company Number: WAES 0801USA04952

PATIENT
  Age: 52 Year
  Sex: Female
  Weight: 65.318 kg

DRUGS (4)
  1. ISENTRESS [Suspect]
     Indication: HIV INFECTION
     Dosage: PO
     Route: 048
     Dates: start: 20071215
  2. KALETRA [Concomitant]
  3. PEG-INTRON [Concomitant]
  4. REBETOL [Concomitant]

REACTIONS (4)
  - EATING DISORDER [None]
  - FATIGUE [None]
  - NAUSEA [None]
  - VOMITING [None]
